FAERS Safety Report 16482671 (Version 2)
Quarter: 2019Q3

REPORT INFORMATION
  Report Type: Spontaneous
  Country: FR (occurrence: FR)
  Receive Date: 20190627
  Receipt Date: 20190727
  Transmission Date: 20191004
  Serious: Yes (Other)
  Sender: FDA-Public Use
  Company Number: FR-ACCORD-135234

PATIENT
  Age: 11 Year
  Sex: Male
  Weight: 47 kg

DRUGS (1)
  1. ARIPIPRAZOLE. [Suspect]
     Active Substance: ARIPIPRAZOLE
     Indication: PSYCHOMOTOR HYPERACTIVITY
     Route: 048
     Dates: start: 20181215, end: 20190509

REACTIONS (8)
  - Emotional disorder [Not Recovered/Not Resolved]
  - Anxiety [Not Recovered/Not Resolved]
  - Priapism [Recovered/Resolved]
  - Weight increased [Not Recovered/Not Resolved]
  - Increased appetite [Not Recovered/Not Resolved]
  - Suicidal ideation [Recovered/Resolved]
  - Excessive eye blinking [Recovered/Resolved]
  - Tic [Recovered/Resolved]

NARRATIVE: CASE EVENT DATE: 201812
